FAERS Safety Report 24196377 (Version 1)
Quarter: 2024Q3

REPORT INFORMATION
  Report Type: Spontaneous
  Country: JP (occurrence: JP)
  Receive Date: 20240809
  Receipt Date: 20240809
  Transmission Date: 20241017
  Serious: Yes (Hospitalization)
  Sender: NOVITIUM PHARMA
  Company Number: JP-NOVITIUMPHARMA-2024JPNVP01520

PATIENT
  Age: 72 Year
  Sex: Male
  Weight: 71.4 kg

DRUGS (9)
  1. CARBAMAZEPINE [Suspect]
     Active Substance: CARBAMAZEPINE
     Indication: Status epilepticus
  2. METHYLPREDNISOLONE [Concomitant]
     Active Substance: METHYLPREDNISOLONE
     Indication: Encephalitis
  3. LEVETIRACETAM [Concomitant]
     Active Substance: LEVETIRACETAM
     Indication: Seizure
  4. PERAMPANEL [Concomitant]
     Active Substance: PERAMPANEL
     Indication: Status epilepticus
  5. CLOBAZAM [Concomitant]
     Active Substance: CLOBAZAM
     Indication: Status epilepticus
  6. LACOSAMIDE [Concomitant]
     Active Substance: LACOSAMIDE
     Indication: Status epilepticus
  7. Thiamylal-sodium [Concomitant]
     Indication: Product used for unknown indication
     Dosage: LOADING DOSE OF 150MG
     Route: 040
  8. Thiamylal-sodium [Concomitant]
     Dosage: 300 MG/H
  9. Thiamylal-sodium [Concomitant]
     Dosage: 375 MG/HOUR

REACTIONS (1)
  - Drug interaction [Unknown]
